FAERS Safety Report 22136773 (Version 2)
Quarter: 2023Q2

REPORT INFORMATION
  Report Type: Spontaneous
  Country: US (occurrence: US)
  Receive Date: 20230324
  Receipt Date: 20230402
  Transmission Date: 20230721
  Serious: No
  Sender: FDA-Public Use
  Company Number: US-002147023-NVSC2023US068844

PATIENT
  Sex: Female

DRUGS (1)
  1. LEQVIO [Suspect]
     Active Substance: INCLISIRAN SODIUM
     Indication: Arteriosclerosis
     Dosage: 284 MG (1.5ML) (INITIAL DOSE, NEXT AT 3 MONTHS, AND THEN EVERY 6 MONTHS THEREAFTER)
     Route: 058
     Dates: start: 20230206

REACTIONS (1)
  - Low density lipoprotein increased [Not Recovered/Not Resolved]
